FAERS Safety Report 8365293-7 (Version None)
Quarter: 2012Q2

REPORT INFORMATION
  Report Type: 
  Country: None (occurrence: None)
  Receive Date: 20120516
  Receipt Date: 20120508
  Transmission Date: 20120825
  Serious: Yes (Hospitalization)
  Sender: FDA-Public Use
  Company Number: JP-VERTEX PHARMACEUTICALS INC.-AE-2012-005993

PATIENT
  Age: 63 Year
  Sex: Female

DRUGS (10)
  1. PEGINTERFERON ALFA-2B [Concomitant]
     Route: 051
     Dates: start: 20120409
  2. TELAVIC (TELAPREVIR) [Suspect]
     Indication: HEPATITIS C
     Route: 048
     Dates: start: 20120409
  3. VOLTAREN [Concomitant]
     Route: 054
     Dates: start: 20120409
  4. SELBEX [Concomitant]
     Route: 048
     Dates: start: 20120409
  5. ZOLPIDEM [Concomitant]
     Route: 048
     Dates: start: 20120420, end: 20120501
  6. ALENDRONATE SODIUM [Concomitant]
     Route: 048
     Dates: start: 20120424
  7. RIBAVIRIN [Concomitant]
     Indication: HEPATITIS C
     Route: 048
     Dates: start: 20120409
  8. LOXONIN [Concomitant]
     Route: 048
     Dates: start: 20120409
  9. RABEPRAZOLE SODIUM [Concomitant]
     Route: 048
     Dates: start: 20120418
  10. URSO 250 [Concomitant]
     Route: 048

REACTIONS (5)
  - PYREXIA [None]
  - DRUG ERUPTION [None]
  - ERYTHEMA [None]
  - PRURITUS [None]
  - RASH [None]
